FAERS Safety Report 5756161-5 (Version None)
Quarter: 2008Q2

REPORT INFORMATION
  Report Type: 
  Country: None (occurrence: None)
  Receive Date: 20080602
  Receipt Date: 20080526
  Transmission Date: 20081010
  Serious: Yes (Hospitalization)
  Sender: FDA-Public Use
  Company Number: DE-MERCK-0805DEU00093

PATIENT
  Age: 50 Year
  Sex: Female
  Weight: 115 kg

DRUGS (4)
  1. JANUVIA [Suspect]
     Indication: TYPE 2 DIABETES MELLITUS
     Route: 048
     Dates: start: 20080114, end: 20080404
  2. METFORMIN [Concomitant]
     Indication: TYPE 2 DIABETES MELLITUS
     Route: 048
     Dates: end: 20080404
  3. INSULIN [Concomitant]
     Indication: TYPE 2 DIABETES MELLITUS
     Route: 058
  4. [THERAPY UNSPECIFIED] [Concomitant]
     Indication: ESSENTIAL HYPERTENSION
     Route: 065

REACTIONS (1)
  - ADVERSE EVENT [None]
